FAERS Safety Report 18808032 (Version 1)
Quarter: 2021Q1

REPORT INFORMATION
  Report Type: Spontaneous
  Country: US (occurrence: US)
  Receive Date: 20210129
  Receipt Date: 20210129
  Transmission Date: 20210419
  Serious: Yes (Hospitalization)
  Sender: FDA-Public Use
  Company Number: None

PATIENT
  Age: 66 Year
  Sex: Male

DRUGS (1)
  1. BAMLANIVIMAB. [Suspect]
     Active Substance: BAMLANIVIMAB
     Indication: COVID-19
     Dosage: ?          OTHER FREQUENCY:ONCE;?
     Route: 040
     Dates: start: 20210122, end: 20210122

REACTIONS (5)
  - Acute kidney injury [None]
  - Feeling abnormal [None]
  - Toxic encephalopathy [None]
  - Dizziness [None]
  - Presyncope [None]

NARRATIVE: CASE EVENT DATE: 20210122
